FAERS Safety Report 11607368 (Version 2)
Quarter: 2015Q4

REPORT INFORMATION
  Report Type: Spontaneous
  Country: DE (occurrence: DE)
  Receive Date: 20151007
  Receipt Date: 20151021
  Transmission Date: 20160304
  Serious: Yes (Disabling, Other)
  Sender: FDA-Public Use
  Company Number: DE-AMGEN-DEUSP2015102211

PATIENT
  Age: 72 Year
  Sex: Female
  Weight: 67 kg

DRUGS (4)
  1. PANTOPRAZOL [Concomitant]
     Active Substance: PANTOPRAZOLE SODIUM
     Dosage: 20 MG, UNK
  2. PROLIA [Suspect]
     Active Substance: DENOSUMAB
     Indication: OSTEOPOROSIS
     Dosage: Q6MO
     Route: 065
     Dates: start: 20140210
  3. VITAMIN D3 [Concomitant]
     Active Substance: CHOLECALCIFEROL
  4. VITAMIN B3 [Concomitant]
     Active Substance: NIACIN

REACTIONS (12)
  - Local swelling [Not Recovered/Not Resolved]
  - Cough [Not Recovered/Not Resolved]
  - Throat tightness [Not Recovered/Not Resolved]
  - Pain in extremity [Not Recovered/Not Resolved]
  - Dyspnoea [Not Recovered/Not Resolved]
  - Respiratory distress [Not Recovered/Not Resolved]
  - Bone pain [Not Recovered/Not Resolved]
  - Dysphagia [Not Recovered/Not Resolved]
  - Arthralgia [Not Recovered/Not Resolved]
  - Toothache [Not Recovered/Not Resolved]
  - Sensation of foreign body [Not Recovered/Not Resolved]
  - Device issue [Not Recovered/Not Resolved]

NARRATIVE: CASE EVENT DATE: 20140210
